FAERS Safety Report 10202684 (Version 1)
Quarter: 2014Q2

REPORT INFORMATION
  Report Type: Spontaneous
  Country: GB (occurrence: GB)
  Receive Date: 20140528
  Receipt Date: 20140528
  Transmission Date: 20141212
  Serious: Yes (Hospitalization)
  Sender: FDA-Public Use
  Company Number: GB-FRI-1000067565

PATIENT
  Age: 33 Year
  Sex: Female

DRUGS (2)
  1. CITALOPRAM [Suspect]
     Indication: DEPRESSION
     Route: 048
  2. IMIGRAN RECOVERY [Suspect]
     Indication: MIGRAINE
     Route: 048
     Dates: start: 20140429

REACTIONS (3)
  - Dizziness [Recovered/Resolved]
  - Drug interaction [Unknown]
  - Palpitations [Recovered/Resolved]
